FAERS Safety Report 16653158 (Version 2)
Quarter: 2019Q3

REPORT INFORMATION
  Report Type: Spontaneous
  Country: CZ (occurrence: CZ)
  Receive Date: 20190731
  Receipt Date: 20190923
  Transmission Date: 20191004
  Serious: Yes (Other)
  Sender: FDA-Public Use
  Company Number: CZ-SA-2019SA202025

PATIENT
  Sex: Male

DRUGS (9)
  1. OXALIPLATIN. [Suspect]
     Active Substance: OXALIPLATIN
     Indication: COLORECTAL CANCER
     Dosage: 6 CYCLES
     Route: 048
  2. CAPECITABINE. [Suspect]
     Active Substance: CAPECITABINE
     Indication: COLORECTAL CANCER
     Dosage: UNK UNK, QCY
     Route: 048
  3. REGORAFENIB. [Concomitant]
     Active Substance: REGORAFENIB
     Indication: COLORECTAL CANCER
     Dosage: UNK, UNK
     Route: 065
  4. FLUOROURACIL. [Concomitant]
     Active Substance: FLUOROURACIL
     Indication: COLORECTAL CANCER
     Dosage: UNK, QCY
     Route: 065
     Dates: start: 201502
  5. TIPIRACIL HYDROCHLORIDE;TRIFLURIDINE [Concomitant]
     Active Substance: TIPIRACIL HYDROCHLORIDE\TRIFLURIDINE
     Indication: COLORECTAL CANCER
     Dosage: GRADE 3 ASYMPTOMATIC NEUTROPENIA WAS OBSERVED AFTER CYCLE 1 (THE DOSE WAS REDUCED TO TWICE 50 MG STA
     Route: 065
  6. BEVACIZUMAB. [Suspect]
     Active Substance: BEVACIZUMAB
     Indication: COLORECTAL CANCER
     Dosage: UNK UNK, QCY
     Route: 065
     Dates: start: 201502, end: 201703
  7. LEUCOVORIN [FOLINIC ACID] [Concomitant]
     Active Substance: LEUCOVORIN
     Indication: COLORECTAL CANCER
     Dosage: 12 CYCLES
     Route: 065
  8. TIPIRACIL HYDROCHLORIDE;TRIFLURIDINE [Concomitant]
     Active Substance: TIPIRACIL HYDROCHLORIDE\TRIFLURIDINE
     Dosage: ON DAYS 1-5 AND 8-12
     Route: 065
  9. IRINOTECAN [Concomitant]
     Active Substance: IRINOTECAN
     Indication: COLORECTAL CANCER
     Dosage: UNK, QCY
     Route: 065
     Dates: start: 201502

REACTIONS (3)
  - Nephrotic syndrome [Unknown]
  - Haematotoxicity [Recovered/Resolved]
  - Neurotoxicity [Recovered/Resolved]

NARRATIVE: CASE EVENT DATE: 201703
